FAERS Safety Report 5566576-6 (Version None)
Quarter: 2007Q4

REPORT INFORMATION
  Report Type: 
  Country: None (occurrence: None)
  Receive Date: 20071214
  Receipt Date: 20071203
  Transmission Date: 20080405
  Serious: Yes (Life-Threatening, Other)
  Sender: FDA-Public Use
  Company Number: 43338

PATIENT
  Age: 68 Year
  Sex: Male

DRUGS (11)
  1. CYTARABINE [Suspect]
     Indication: CHRONIC LYMPHOCYTIC LEUKAEMIA
     Dosage: 500MG/IV/DAYS 2-4
     Route: 042
     Dates: start: 20071011, end: 20071016
  2. BACTRIM DS [Concomitant]
  3. CELEBREX [Concomitant]
  4. COMPAZINE [Concomitant]
  5. DIFLUCAN [Concomitant]
  6. HEPARIN [Concomitant]
  7. LEVAQUIN [Concomitant]
  8. LISINOPRIL AND HYDROCHLOROTHIAZIDE [Concomitant]
  9. MULTI-VITAMIN [Concomitant]
  10. SERTRALINE [Concomitant]
  11. VALTREX [Concomitant]

REACTIONS (1)
  - HAEMOLYTIC ANAEMIA [None]
